FAERS Safety Report 7014114-3 (Version None)
Quarter: 2010Q3

REPORT INFORMATION
  Report Type: 
  Country: None (occurrence: None)
  Receive Date: 20100927
  Receipt Date: 20100507
  Transmission Date: 20110219
  Serious: Yes (Hospitalization, Other)
  Sender: FDA-Public Use
  Company Number: GB-RANBAXY-2010RR-36551

PATIENT
  Age: 61 Year
  Sex: Male

DRUGS (7)
  1. CIPROFLOXACIN [Suspect]
     Indication: PRODUCT USED FOR UNKNOWN INDICATION
     Route: 065
  2. VENLAFAXINE HCL [Suspect]
     Indication: DEPRESSION
     Dosage: 75MG BID TO 100MG BID
     Route: 065
  3. METHADONE [Suspect]
     Indication: BACK PAIN
     Route: 065
  4. HYDROMORPHONE HCL [Concomitant]
  5. METOCLOPRAMIDE [Concomitant]
  6. OXYCODONE HCL [Concomitant]
  7. CYPROHEPATADINE [Concomitant]
     Dosage: 8MG BID
     Route: 048

REACTIONS (2)
  - DRUG INTERACTION [None]
  - SEROTONIN SYNDROME [None]
